FAERS Safety Report 21842476 (Version 1)
Quarter: 2023Q1

REPORT INFORMATION
  Report Type: Spontaneous
  Country: US (occurrence: US)
  Receive Date: 20230110
  Receipt Date: 20230110
  Transmission Date: 20230417
  Serious: Yes (Hospitalization)
  Sender: FDA-Public Use
  Company Number: US-CHIESI-2022CHF06687

PATIENT
  Sex: Male
  Weight: 67 kg

DRUGS (5)
  1. FERRIPROX [Suspect]
     Active Substance: DEFERIPRONE
     Indication: Aplastic anaemia
     Dosage: 15 MILLILITER, TID
     Route: 048
     Dates: start: 20221028
  2. FERRIPROX [Suspect]
     Active Substance: DEFERIPRONE
     Indication: Haemochromatosis
  3. FERRIPROX [Suspect]
     Active Substance: DEFERIPRONE
     Indication: Transfusion
  4. FERRIPROX [Suspect]
     Active Substance: DEFERIPRONE
     Indication: Myelodysplastic syndrome
  5. FERRIPROX [Suspect]
     Active Substance: DEFERIPRONE
     Indication: Off label use

REACTIONS (3)
  - Ill-defined disorder [Unknown]
  - Off label use [Not Recovered/Not Resolved]
  - Off label use [Not Recovered/Not Resolved]

NARRATIVE: CASE EVENT DATE: 20220101
